FAERS Safety Report 14540770 (Version 1)
Quarter: 2018Q1

REPORT INFORMATION
  Report Type: Spontaneous
  Country: US (occurrence: US)
  Receive Date: 20180216
  Receipt Date: 20180216
  Transmission Date: 20180509
  Serious: Yes (Other)
  Sender: FDA-Public Use
  Company Number: US-OTSUKA-KJ20042716

PATIENT

DRUGS (3)
  1. ABILIFY [Suspect]
     Active Substance: ARIPIPRAZOLE
     Indication: IMPULSE-CONTROL DISORDER
     Route: 048
     Dates: end: 20041005
  2. ABILIFY [Suspect]
     Active Substance: ARIPIPRAZOLE
     Indication: IMPULSE-CONTROL DISORDER
     Route: 048
     Dates: start: 20040419
  3. BENADRYL [Concomitant]
     Active Substance: DIPHENHYDRAMINE HYDROCHLORIDE
     Route: 065

REACTIONS (6)
  - Lipase increased [Unknown]
  - Vomiting [Unknown]
  - Blood bilirubin increased [Unknown]
  - Blood alkaline phosphatase increased [Unknown]
  - Biliary dilatation [Unknown]
  - Nausea [Unknown]

NARRATIVE: CASE EVENT DATE: 20041001
